FAERS Safety Report 9542398 (Version 1)
Quarter: 2013Q2

REPORT INFORMATION
  Report Type: Spontaneous
  Country: US (occurrence: None)
  Receive Date: 20130524
  Receipt Date: 20130524
  Transmission Date: 20140414
  Serious: No
  Sender: FDA-Public Use
  Company Number: PHEH2013US002004

PATIENT
  Age: 19 Year
  Sex: Female
  Weight: 81.6 kg

DRUGS (2)
  1. GILENYA ( FINGOLIMOD) CAPSULE, 0.5 MG [Suspect]
     Indication: MULTIPLE SCLEROSIS
     Route: 048
     Dates: start: 201209
  2. VITAMIN B12 (CYANOCOBALAMIN)TABLET [Concomitant]

REACTIONS (1)
  - Hot flush [None]
